FAERS Safety Report 4924796-5 (Version None)
Quarter: 2006Q1

REPORT INFORMATION
  Report Type: 
  Country: None (occurrence: None)
  Receive Date: 20060227
  Receipt Date: 20050927
  Transmission Date: 20060701
  Serious: Yes (Hospitalization, Other)
  Sender: FDA-Public Use
  Company Number: US-MERCK-0509USA04059

PATIENT
  Age: 62 Year
  Sex: Male
  Weight: 111 kg

DRUGS (9)
  1. VIOXX [Suspect]
     Indication: BACK PAIN
     Route: 048
     Dates: start: 19990801, end: 20041001
  2. VIOXX [Suspect]
     Route: 048
     Dates: start: 19990801, end: 19990801
  3. VIOXX [Suspect]
     Route: 048
  4. VIOXX [Suspect]
     Indication: SPONDYLITIS
     Route: 048
     Dates: start: 19990801, end: 20041001
  5. VIOXX [Suspect]
     Route: 048
     Dates: start: 19990801, end: 19990801
  6. VIOXX [Suspect]
     Route: 048
  7. CORGARD [Concomitant]
     Route: 065
  8. ZESTRIL [Concomitant]
     Route: 065
  9. LOPID [Concomitant]
     Route: 065

REACTIONS (22)
  - ANGINA UNSTABLE [None]
  - ATRIAL FIBRILLATION [None]
  - ATRIOVENTRICULAR BLOCK [None]
  - CARDIAC FAILURE CONGESTIVE [None]
  - CAROTID ARTERY STENOSIS [None]
  - CHRONIC OBSTRUCTIVE PULMONARY DISEASE [None]
  - CORONARY ARTERY DISEASE [None]
  - DIABETES MELLITUS [None]
  - DYSPNOEA [None]
  - ERECTILE DYSFUNCTION [None]
  - GASTROOESOPHAGEAL REFLUX DISEASE [None]
  - HYPERLIPIDAEMIA [None]
  - INFECTION [None]
  - INGUINAL HERNIA [None]
  - LUNG INFILTRATION [None]
  - MITRAL VALVE INCOMPETENCE [None]
  - MUSCULOSKELETAL CHEST PAIN [None]
  - MYOCARDIAL INFARCTION [None]
  - MYOCARDIAL ISCHAEMIA [None]
  - OSTEOARTHRITIS [None]
  - SILENT MYOCARDIAL INFARCTION [None]
  - VERTIGO [None]
